FAERS Safety Report 16775251 (Version 1)
Quarter: 2019Q3

REPORT INFORMATION
  Report Type: Spontaneous
  Country: GB (occurrence: GB)
  Receive Date: 20190905
  Receipt Date: 20190905
  Transmission Date: 20191005
  Serious: Yes (Other)
  Sender: FDA-Public Use
  Company Number: GB-MACLEODS PHARMACEUTICALS US LTD-MAC2019022853

PATIENT

DRUGS (1)
  1. CLOBETASOL 0.05 % W/W [Suspect]
     Active Substance: CLOBETASOL
     Indication: LICHEN SCLEROSUS
     Dosage: UNK UNK, QD, OINTMENT
     Route: 061

REACTIONS (2)
  - Skin striae [Recovering/Resolving]
  - Hypothalamic pituitary adrenal axis suppression [Recovered/Resolved]
